FAERS Safety Report 9190169 (Version 2)
Quarter: 2013Q2

REPORT INFORMATION
  Report Type: Spontaneous
  Country: US (occurrence: None)
  Receive Date: 20120703
  Receipt Date: 20121031
  Transmission Date: 20140414
  Serious: Yes (Other)
  Sender: FDA-Public Use
  Company Number: PHEH2012US006283

PATIENT
  Age: 45 Year
  Sex: Female
  Weight: 136.5 kg

DRUGS (6)
  1. GILENYA [Suspect]
     Indication: MULTIPLE SCLEROSIS
     Route: 048
     Dates: start: 20110503
  2. AMTRIPTYLINE (AMTRIPYLINE) [Concomitant]
  3. BACLOFEN (BACLOFEN) [Concomitant]
  4. CELEXA (CITALOPRAM HYDROBROMIDE) [Concomitant]
  5. ENABLREX (DARIFENACIN HYDROBROMIDE) [Concomitant]
  6. LEVOTHYROXINE (LEVOTHYROXINE) [Concomitant]

REACTIONS (4)
  - Depression [None]
  - Visual impairment [None]
  - Mydriasis [None]
  - Muscle spasms [None]
